FAERS Safety Report 4556352-5 (Version None)
Quarter: 2005Q1

REPORT INFORMATION
  Report Type: 
  Country: None (occurrence: None)
  Receive Date: 20050103
  Receipt Date: 20040813
  Transmission Date: 20050727
  Serious: Yes (Other)
  Sender: FDA-Public Use
  Company Number: 2004UW17310

PATIENT

DRUGS (1)
  1. CRESTOR [Suspect]

REACTIONS (1)
  - LOW DENSITY LIPOPROTEIN INCREASED [None]
